FAERS Safety Report 10581943 (Version 3)
Quarter: 2015Q1

REPORT INFORMATION
  Report Type: Spontaneous
  Country: US (occurrence: US)
  Receive Date: 20141113
  Receipt Date: 20150204
  Transmission Date: 20150720
  Serious: No
  Sender: FDA-Public Use
  Company Number: US-PFIZER INC-2014311445

PATIENT
  Age: 90 Year
  Sex: Female
  Weight: 62 kg

DRUGS (9)
  1. ATENOLOL. [Concomitant]
     Active Substance: ATENOLOL
     Indication: BLOOD PRESSURE
     Dosage: 25 MG, 2X/DAY
     Route: 048
     Dates: start: 201306
  2. LYRICA [Suspect]
     Active Substance: PREGABALIN
     Indication: HERPES ZOSTER
  3. VITAMINS NOS [Concomitant]
     Active Substance: VITAMINS
  4. LYRICA [Suspect]
     Active Substance: PREGABALIN
     Indication: PAIN
     Dosage: 50 MG, 1X/DAY
     Route: 048
     Dates: end: 201411
  5. LOSARTAN/HCTZ GT [Concomitant]
     Indication: BLOOD PRESSURE
     Dosage: 1 DF, 1X/DAY
     Route: 048
     Dates: start: 201306
  6. GAS-X [Concomitant]
     Active Substance: DIMETHICONE
     Dosage: UNK, AS NEEDED
  7. TUMS [Concomitant]
     Active Substance: CALCIUM CARBONATE
     Dosage: UNK, AS NEEDED
  8. KEPPRA [Suspect]
     Active Substance: LEVETIRACETAM
     Indication: SEIZURE
     Dosage: 500 MG, 2X/DAY
     Route: 048
  9. VITAMIN D3 [Concomitant]
     Active Substance: CHOLECALCIFEROL
     Dosage: 1000 IU, 1X/DAY
     Route: 048

REACTIONS (10)
  - Weight increased [Not Recovered/Not Resolved]
  - Insomnia [Unknown]
  - Dizziness [Unknown]
  - Constipation [Unknown]
  - Eye disorder [Unknown]
  - Blood pressure fluctuation [Unknown]
  - Stress [Unknown]
  - Abdominal distension [Unknown]
  - Eating disorder [Unknown]
  - Nausea [Unknown]

NARRATIVE: CASE EVENT DATE: 20141106
